FAERS Safety Report 6090269-2 (Version None)
Quarter: 2009Q1

REPORT INFORMATION
  Report Type: 
  Country: None (occurrence: None)
  Receive Date: 20090224
  Receipt Date: 20081218
  Transmission Date: 20090719
  Serious: No
  Sender: FDA-Public Use
  Company Number: US-ABBOTT-08P-163-0493564-00

PATIENT
  Sex: Female
  Weight: 76.272 kg

DRUGS (3)
  1. SIMCOR [Suspect]
     Indication: BLOOD TRIGLYCERIDES INCREASED
     Dosage: 500/20 MG
     Route: 048
     Dates: start: 20081101
  2. NUPRIN [Concomitant]
     Indication: FLUSHING
  3. NUPRIN [Concomitant]
     Indication: PROPHYLAXIS

REACTIONS (3)
  - ARTERIAL DISORDER [None]
  - CHEST DISCOMFORT [None]
  - CHEST PAIN [None]
